FAERS Safety Report 16425789 (Version 1)
Quarter: 2019Q2

REPORT INFORMATION
  Report Type: Spontaneous
  Country: CA (occurrence: CA)
  Receive Date: 20190613
  Receipt Date: 20190613
  Transmission Date: 20190711
  Serious: Yes (Hospitalization)
  Sender: FDA-Public Use
  Company Number: CA-009507513-1812CAN002951

PATIENT
  Age: 67 Year
  Sex: Male

DRUGS (2)
  1. ONCOTICE [Suspect]
     Active Substance: BACILLUS CALMETTE-GUERIN SUBSTRAIN TICE LIVE ANTIGEN
     Indication: TRANSITIONAL CELL CARCINOMA
     Dosage: RECEIVED FIFTEEN INSTILLATIONS
     Route: 043
  2. ONCOTICE [Suspect]
     Active Substance: BACILLUS CALMETTE-GUERIN SUBSTRAIN TICE LIVE ANTIGEN
     Dosage: UNK
     Route: 043

REACTIONS (5)
  - Infective aneurysm [Recovered/Resolved]
  - Aortic aneurysm [Recovered/Resolved]
  - Weight decreased [Unknown]
  - Night sweats [Unknown]
  - Granulomatosis with polyangiitis [Unknown]
